FAERS Safety Report 6542646-0 (Version None)
Quarter: 2010Q1

REPORT INFORMATION
  Report Type: 
  Country: None (occurrence: None)
  Receive Date: 20100119
  Receipt Date: 20100107
  Transmission Date: 20100710
  Serious: No
  Sender: FDA-Public Use
  Company Number: US-ELI_LILLY_AND_COMPANY-US201001001176

PATIENT
  Sex: Female

DRUGS (6)
  1. CYMBALTA [Suspect]
     Indication: PANIC ATTACK
     Dosage: 30 MG, DAILY (1/D)
     Dates: start: 20090101
  2. MULTI-VITAMIN [Concomitant]
  3. CALCIUM [Concomitant]
  4. MAGNESIUM /00123201/ [Concomitant]
  5. FISH OIL [Concomitant]
  6. ASPIRIN /USA/ [Concomitant]
     Dosage: 81 MG, UNK

REACTIONS (4)
  - ALANINE AMINOTRANSFERASE INCREASED [None]
  - ASPARTATE AMINOTRANSFERASE INCREASED [None]
  - BLOOD CHOLESTEROL INCREASED [None]
  - OFF LABEL USE [None]
